FAERS Safety Report 13874001 (Version 1)
Quarter: 2017Q3

REPORT INFORMATION
  Report Type: Spontaneous
  Country: US (occurrence: US)
  Receive Date: 20170816
  Receipt Date: 20170816
  Transmission Date: 20171127
  Serious: Yes (Other)
  Sender: FDA-Public Use
  Company Number: US-PRODUCTLIFE GROUP-GTC2012000012

PATIENT
  Sex: Male
  Weight: 2 kg

DRUGS (25)
  1. ATRYN [Suspect]
     Active Substance: ANTITHROMBIN ALFA
     Dosage: 29 IU/HR
     Dates: start: 20120318
  2. HEPARIN [Concomitant]
     Active Substance: HEPARIN SODIUM
     Dosage: 35 IU/KG/HR
     Route: 042
     Dates: start: 20120318
  3. ATRYN [Suspect]
     Active Substance: ANTITHROMBIN ALFA
     Indication: OFF LABEL USE
     Dosage: 64 IU, BOLUS
     Route: 042
     Dates: start: 20120316, end: 20120316
  4. ATRYN [Suspect]
     Active Substance: ANTITHROMBIN ALFA
     Dosage: 100 IU, BOLUS
     Route: 042
     Dates: start: 20120319, end: 20120319
  5. HEPARIN [Concomitant]
     Active Substance: HEPARIN SODIUM
     Dosage: 10 IU/KG/HR
     Route: 042
     Dates: start: 20120316
  6. HEPARIN [Concomitant]
     Active Substance: HEPARIN SODIUM
     Dosage: 18 IU/KG/HR
     Route: 042
     Dates: start: 20120317
  7. ATRYN [Suspect]
     Active Substance: ANTITHROMBIN ALFA
     Indication: DRUG ADMINISTERED TO PATIENT OF INAPPROPRIATE AGE
     Dosage: 14 IU/HR
     Route: 042
     Dates: start: 20120316
  8. HEPARIN [Concomitant]
     Active Substance: HEPARIN SODIUM
     Dosage: 28 IU/KG/HR
     Route: 042
     Dates: start: 20120318
  9. HEPARIN [Concomitant]
     Active Substance: HEPARIN SODIUM
     Dosage: 100 IU, BOLUS
     Route: 042
     Dates: start: 20120318, end: 20120318
  10. ATRYN [Suspect]
     Active Substance: ANTITHROMBIN ALFA
     Dosage: 75 IU, BOLUS
     Route: 042
     Dates: start: 20120317, end: 20120317
  11. ATRYN [Suspect]
     Active Substance: ANTITHROMBIN ALFA
     Dosage: 65 IU, BOLUS
     Route: 042
     Dates: start: 20120317, end: 20120317
  12. HEPARIN [Concomitant]
     Active Substance: HEPARIN SODIUM
     Indication: PRODUCT USED FOR UNKNOWN INDICATION
     Dosage: 5 IU/KG/HR
     Route: 042
     Dates: start: 20120316
  13. HEPARIN [Concomitant]
     Active Substance: HEPARIN SODIUM
     Dosage: 100 IU, BOLUS
     Route: 042
     Dates: start: 20120317
  14. HEPARIN [Concomitant]
     Active Substance: HEPARIN SODIUM
     Dosage: 32 IU/KG/HR
     Route: 042
     Dates: start: 20120318
  15. ATRYN [Suspect]
     Active Substance: ANTITHROMBIN ALFA
     Dosage: 50 IU, BOLUS
     Route: 042
     Dates: start: 20120318, end: 20120318
  16. HEPARIN [Concomitant]
     Active Substance: HEPARIN SODIUM
     Dosage: 100 IU, BOLUS
     Route: 042
     Dates: start: 20120318, end: 20120318
  17. HEPARIN [Concomitant]
     Active Substance: HEPARIN SODIUM
     Dosage: 40 IU/KG/HR
     Route: 042
     Dates: start: 20120318, end: 20120320
  18. ATRYN [Suspect]
     Active Substance: ANTITHROMBIN ALFA
     Dosage: 70 IU, BOLUS
     Route: 042
     Dates: start: 20120318, end: 20120318
  19. HEPARIN [Concomitant]
     Active Substance: HEPARIN SODIUM
     Dosage: 16 IU/KG/HR
     Route: 042
     Dates: start: 20120317
  20. HEPARIN [Concomitant]
     Active Substance: HEPARIN SODIUM
     Dosage: 24 IU/KG/HR
     Route: 042
     Dates: start: 20120317
  21. ATRYN [Suspect]
     Active Substance: ANTITHROMBIN ALFA
     Dosage: 17 IU/HR
     Route: 042
     Dates: start: 20120317
  22. ATRYN [Suspect]
     Active Substance: ANTITHROMBIN ALFA
     Dosage: 22 IU/HR
     Route: 042
     Dates: start: 20120317
  23. HEPARIN [Concomitant]
     Active Substance: HEPARIN SODIUM
     Dosage: 13 IU/KG/HR
     Route: 042
     Dates: start: 20120316
  24. ATRYN [Suspect]
     Active Substance: ANTITHROMBIN ALFA
     Dosage: 35 IU/HR
     Route: 042
     Dates: start: 20120318
  25. ATRYN [Suspect]
     Active Substance: ANTITHROMBIN ALFA
     Dosage: 42 IU/HR
     Route: 042
     Dates: start: 20120319

REACTIONS (2)
  - Off label use [Unknown]
  - Drug ineffective for unapproved indication [Recovered/Resolved]
